FAERS Safety Report 7151244-X (Version None)
Quarter: 2010Q4

REPORT INFORMATION
  Report Type: 
  Country: None (occurrence: None)
  Receive Date: 20101210
  Receipt Date: 20101207
  Transmission Date: 20110411
  Serious: Yes (Hospitalization)
  Sender: FDA-Public Use
  Company Number: FR-BRISTOL-MYERS SQUIBB COMPANY-15377997

PATIENT
  Age: 70 Year
  Sex: Female

DRUGS (8)
  1. GLUCOPHAGE [Suspect]
     Indication: DIABETES MELLITUS
     Dosage: 1 DF:3 DF
     Route: 048
  2. NOROXIN [Suspect]
     Indication: URINARY TRACT INFECTION
     Dosage: 400MG TAB 1 DF:2DF
     Route: 048
     Dates: start: 20100504, end: 20100508
  3. DEROXAT [Suspect]
     Indication: DEPRESSION
     Dosage: STRENGTH:20 MG TABS LONG TERM TREATMENT
     Route: 048
     Dates: end: 20100507
  4. INIPOMP [Suspect]
     Indication: GASTROOESOPHAGEAL REFLUX DISEASE
     Dosage: STRENGTH:40MG TABS LONG TERM TREATMENT
     Route: 048
     Dates: end: 20100507
  5. EXELON [Suspect]
     Indication: COGNITIVE DISORDER
     Dosage: STRENGTH:4.5MG CAPS 1 DF:2 DF LONG TERM TREATMENT
     Route: 048
     Dates: end: 20100508
  6. DIAMICRON [Suspect]
     Indication: DIABETES MELLITUS
     Dosage: 30MG TABS LONG TERM TREATMENT
     Route: 048
  7. IMOVANE [Suspect]
     Indication: SLEEP DISORDER
     Dosage: 7.5MG TABS
     Route: 048
     Dates: start: 20100430
  8. DEPAKENE [Suspect]
     Indication: EPILEPSY
     Dosage: 500MG,PROLONGED RELEASE TAB 1 DF:2DF LONG TERM TREATMENT
     Route: 048

REACTIONS (3)
  - EPILEPSY [None]
  - HYPONATRAEMIA [None]
  - URINARY TRACT INFECTION [None]
